FAERS Safety Report 5418841-0 (Version None)
Quarter: 2007Q3

REPORT INFORMATION
  Report Type: 
  Country: None (occurrence: None)
  Receive Date: 20070718
  Receipt Date: 20060717
  Transmission Date: 20080115
  Serious: Yes (Hospitalization, Other)
  Sender: FDA-Public Use
  Company Number: 2006090151

PATIENT
  Age: 36 Year
  Sex: Male
  Weight: 90.7194 kg

DRUGS (2)
  1. CELEBREX [Suspect]
     Indication: ARTHRITIS
     Dosage: 400 MG (200 MG, 2 IN 1 D)
  2. BEXTRA [Suspect]
     Indication: ARTHRITIS
     Dosage: 20 MG (20 MG, 1 IN 1 D)

REACTIONS (3)
  - ANGINA PECTORIS [None]
  - DEPRESSION [None]
  - MYOCARDIAL INFARCTION [None]
